FAERS Safety Report 8555106-2 (Version None)
Quarter: 2012Q3

REPORT INFORMATION
  Report Type: 
  Country: None (occurrence: None)
  Receive Date: 20120731
  Receipt Date: 20120727
  Transmission Date: 20120928
  Serious: Yes (Disabling, Other)
  Sender: FDA-Public Use
  Company Number: NO-PFIZER INC-2012182309

PATIENT
  Age: 60 Year
  Sex: Female

DRUGS (1)
  1. VARENICLINE TARTRATE [Suspect]
     Dosage: AS DESCRIBED IN THE INSTRUCTION
     Dates: end: 20090101

REACTIONS (6)
  - BACK PAIN [None]
  - RHINITIS [None]
  - DEPRESSION SUICIDAL [None]
  - PALPITATIONS [None]
  - ANXIETY [None]
  - VISION BLURRED [None]
